FAERS Safety Report 20799488 (Version 1)
Quarter: 2022Q2

REPORT INFORMATION
  Report Type: Spontaneous
  Country: IT (occurrence: None)
  Receive Date: 20220508
  Receipt Date: 20220508
  Transmission Date: 20220720
  Serious: No
  Sender: FDA-Public Use
  Company Number: IT-ROCHE-3090239

PATIENT
  Sex: Female
  Weight: 62 kg

DRUGS (1)
  1. OCREVUS [Suspect]
     Active Substance: OCRELIZUMAB
     Indication: Multiple sclerosis
     Route: 065
     Dates: start: 20210427

REACTIONS (3)
  - Cough [Unknown]
  - Throat irritation [Unknown]
  - Candida infection [Unknown]
